FAERS Safety Report 18098982 (Version 1)
Quarter: 2020Q3

REPORT INFORMATION
  Report Type: Spontaneous
  Country: US (occurrence: US)
  Receive Date: 20200731
  Receipt Date: 20200731
  Transmission Date: 20201103
  Serious: No
  Sender: FDA-Public Use
  Company Number: US-ASTRAZENECA-2020SE94350

PATIENT
  Sex: Male

DRUGS (1)
  1. FASLODEX [Suspect]
     Active Substance: FULVESTRANT
     Indication: NEOPLASM
     Dosage: 500 MG/5ML, UNKNOWN
     Route: 030

REACTIONS (2)
  - Cachexia [Unknown]
  - Product use issue [Unknown]
